FAERS Safety Report 9785293 (Version 2)
Quarter: 2013Q4

REPORT INFORMATION
  Report Type: Spontaneous
  Country: DK (occurrence: DK)
  Receive Date: 20131227
  Receipt Date: 20131227
  Transmission Date: 20140711
  Serious: Yes (Hospitalization)
  Sender: FDA-Public Use
  Company Number: DK-JNJFOC-20130400806

PATIENT
  Sex: Female

DRUGS (2)
  1. RISPERDAL [Suspect]
     Indication: SCHIZOPHRENIA
     Route: 065
  2. ZYPREXA [Suspect]
     Indication: SCHIZOPHRENIA
     Route: 065

REACTIONS (5)
  - Tooth infection [Unknown]
  - Tooth loss [Unknown]
  - Dental caries [Unknown]
  - Exposure during pregnancy [Unknown]
  - Weight increased [Unknown]
